FAERS Safety Report 17985340 (Version 2)
Quarter: 2023Q2

REPORT INFORMATION
  Report Type: Spontaneous
  Country: PT (occurrence: PT)
  Receive Date: 20200706
  Receipt Date: 20230502
  Transmission Date: 20230721
  Serious: Yes (Hospitalization, Other)
  Sender: FDA-Public Use
  Company Number: PT-EMA-DD-20200625-KUMARSINGH_A-094246

PATIENT
  Age: 65 Year
  Sex: Female

DRUGS (2)
  1. CISPLATIN [Suspect]
     Active Substance: CISPLATIN
     Indication: Lung squamous cell carcinoma stage II
     Dosage: UNK UNK, 1 CYCLE
     Route: 065
  2. VINORELBINE [Suspect]
     Active Substance: VINORELBINE TARTRATE
     Indication: Lung squamous cell carcinoma stage II
     Dosage: UNK, 2 CYCLE
     Route: 065

REACTIONS (4)
  - Hyponatraemia [Unknown]
  - Posterior reversible encephalopathy syndrome [Recovered/Resolved]
  - Neutropenia [Unknown]
  - Leukopenia [Unknown]
